FAERS Safety Report 8044666-6 (Version None)
Quarter: 2012Q1

REPORT INFORMATION
  Report Type: 
  Country: None (occurrence: None)
  Receive Date: 20120113
  Receipt Date: 20120102
  Transmission Date: 20120608
  Serious: Yes (Hospitalization)
  Sender: FDA-Public Use
  Company Number: FR-NOVOPROD-342390

PATIENT

DRUGS (6)
  1. REPAGLINIDE [Suspect]
     Indication: TYPE 2 DIABETES MELLITUS
     Route: 065
     Dates: start: 20111217, end: 20111220
  2. POTASSIUM CHLORIDE [Concomitant]
     Dosage: PO
     Route: 048
     Dates: start: 20111213
  3. FORLAX                             /00754501/ [Concomitant]
     Dosage: PO
     Route: 048
     Dates: start: 20111216
  4. CORDARONE [Concomitant]
     Dosage: 200 MG, QD
     Route: 048
  5. NOVOMIX 30 FLEXPEN [Concomitant]
     Dosage: /SC
     Route: 058
     Dates: start: 20111213
  6. CACIT                              /00751519/ [Concomitant]
     Dosage: 500 MG, QD
     Route: 048
     Dates: start: 20111216

REACTIONS (1)
  - HEPATITIS [None]
